FAERS Safety Report 12642728 (Version 2)
Quarter: 2016Q4

REPORT INFORMATION
  Report Type: Report from Study
  Country: US (occurrence: US)
  Receive Date: 20160810
  Receipt Date: 20161026
  Transmission Date: 20170207
  Serious: No
  Sender: FDA-Public Use
  Company Number: US-AMGEN-USASL2016101824

PATIENT
  Age: 42 Year
  Sex: Female

DRUGS (1)
  1. ENBREL [Suspect]
     Active Substance: ETANERCEPT
     Indication: PSORIASIS
     Dosage: 50 MG, UNK
     Route: 065

REACTIONS (12)
  - Contusion [Recovered/Resolved]
  - Hyperhidrosis [Unknown]
  - Skin disorder [Unknown]
  - Musculoskeletal disorder [Not Recovered/Not Resolved]
  - Nail pitting [Unknown]
  - Scar [Not Recovered/Not Resolved]
  - Hair growth abnormal [Unknown]
  - Pruritus [Unknown]
  - Skin plaque [Not Recovered/Not Resolved]
  - Psoriasis [Not Recovered/Not Resolved]
  - Drug dose omission [Unknown]
  - Skin irritation [Unknown]

NARRATIVE: CASE EVENT DATE: 2009
